FAERS Safety Report 18566561 (Version 1)
Quarter: 2020Q4

REPORT INFORMATION
  Report Type: Spontaneous
  Country: FR (occurrence: FR)
  Receive Date: 20201201
  Receipt Date: 20201201
  Transmission Date: 20210114
  Serious: Yes (Death, Other)
  Sender: FDA-Public Use
  Company Number: NVSC2020FR319120

PATIENT
  Age: 61 Year
  Sex: Male
  Weight: 98 kg

DRUGS (15)
  1. CELECOXIB. [Concomitant]
     Active Substance: CELECOXIB
     Indication: PRODUCT USED FOR UNKNOWN INDICATION
     Dosage: UNK
     Route: 065
  2. ESOMEPRAZOLE. [Concomitant]
     Active Substance: ESOMEPRAZOLE MAGNESIUM
     Indication: PRODUCT USED FOR UNKNOWN INDICATION
     Dosage: UNK
     Route: 065
     Dates: start: 201510
  3. INEXIUM [Concomitant]
     Active Substance: ESOMEPRAZOLE
     Indication: PRODUCT USED FOR UNKNOWN INDICATION
     Dosage: UNK
     Route: 065
     Dates: start: 20170825
  4. DEXERYL [Concomitant]
     Indication: PRODUCT USED FOR UNKNOWN INDICATION
     Dosage: UNK
     Route: 065
     Dates: start: 20150513
  5. METHOTREXATE. [Suspect]
     Active Substance: METHOTREXATE
     Indication: PRODUCT USED FOR UNKNOWN INDICATION
     Dosage: 15 MG, QW
     Route: 058
     Dates: start: 20150309
  6. CLOBETASOL PROPIONATE. [Concomitant]
     Active Substance: CLOBETASOL PROPIONATE
     Indication: PRODUCT USED FOR UNKNOWN INDICATION
     Dosage: UNK
     Route: 065
     Dates: start: 201503
  7. COSENTYX [Suspect]
     Active Substance: SECUKINUMAB
     Indication: PRODUCT USED FOR UNKNOWN INDICATION
     Dosage: 300 MG, Q4W
     Route: 058
     Dates: start: 20171124
  8. STELARA [Suspect]
     Active Substance: USTEKINUMAB
     Dosage: 90 MG, Q3MO
     Route: 058
     Dates: start: 20170620
  9. REMICADE [Suspect]
     Active Substance: INFLIXIMAB
     Dosage: 500 MG, BIW (ONE DF EVERY 2 WEEKS)
     Route: 042
     Dates: start: 20160512, end: 20170519
  10. DERMOVAL [Concomitant]
     Indication: PRODUCT USED FOR UNKNOWN INDICATION
     Dosage: UNK
     Route: 065
     Dates: start: 20160512
  11. ACIDE FOLIQUE [Suspect]
     Active Substance: FOLIC ACID
     Indication: PRODUCT USED FOR UNKNOWN INDICATION
     Dosage: 5 MG, QW
     Route: 065
     Dates: start: 20150309
  12. REMICADE [Suspect]
     Active Substance: INFLIXIMAB
     Indication: PSORIASIS
     Dosage: 490 MG
     Route: 042
     Dates: start: 20151027
  13. STELARA [Suspect]
     Active Substance: USTEKINUMAB
     Indication: PSORIASIS
     Dosage: 45 MG, 4W
     Route: 058
     Dates: start: 20170519
  14. CELEBREX [Concomitant]
     Active Substance: CELECOXIB
     Indication: PRODUCT USED FOR UNKNOWN INDICATION
     Dosage: UNK
     Route: 065
     Dates: start: 20170519
  15. CLARELUX [Concomitant]
     Active Substance: CLOBETASOL PROPIONATE
     Indication: PRODUCT USED FOR UNKNOWN INDICATION
     Dosage: UNK
     Route: 065
     Dates: start: 20150727

REACTIONS (4)
  - Sudden death [Fatal]
  - Product use issue [Unknown]
  - Off label use [Unknown]
  - Tooth abscess [Recovered/Resolved]

NARRATIVE: CASE EVENT DATE: 20160512
